FAERS Safety Report 8334046-8 (Version None)
Quarter: 2012Q2

REPORT INFORMATION
  Report Type: 
  Country: None (occurrence: None)
  Receive Date: 20120503
  Receipt Date: 20110215
  Transmission Date: 20120825
  Serious: No
  Sender: FDA-Public Use
  Company Number: US-TEVA-2011000735

PATIENT
  Sex: Female

DRUGS (8)
  1. CYMBALTA [Concomitant]
     Dates: start: 20060101
  2. METFORMIN HCL [Concomitant]
     Dates: start: 20040101
  3. NUVIGIL [Suspect]
     Indication: FIBROMYALGIA
  4. LOVASTATIN [Concomitant]
     Dates: start: 19990101
  5. NUVIGIL [Suspect]
     Indication: SLEEP APNOEA SYNDROME
     Dosage: 150 MILLIGRAM;
     Route: 048
     Dates: start: 20110214
  6. GLIPIZIDE [Concomitant]
     Dates: start: 20040101
  7. LANTUS [Concomitant]
     Dates: start: 20100501
  8. OXYCONTIN [Concomitant]
     Dates: start: 20101201

REACTIONS (1)
  - INITIAL INSOMNIA [None]
